FAERS Safety Report 13613215 (Version 1)
Quarter: 2017Q2

REPORT INFORMATION
  Report Type: Spontaneous
  Country: US (occurrence: US)
  Receive Date: 20170605
  Receipt Date: 20170605
  Transmission Date: 20170830
  Serious: Yes (Other)
  Sender: FDA-Public Use
  Company Number: US-TEVA-775176USA

PATIENT
  Age: 46 Year
  Sex: Male

DRUGS (1)
  1. COPAXONE [Suspect]
     Active Substance: GLATIRAMER ACETATE
     Indication: MULTIPLE SCLEROSIS
     Route: 058
     Dates: start: 20150710

REACTIONS (4)
  - Multiple sclerosis relapse [Unknown]
  - Headache [Unknown]
  - Band sensation [Unknown]
  - Vision blurred [Unknown]

NARRATIVE: CASE EVENT DATE: 201705
